FAERS Safety Report 11100287 (Version 1)
Quarter: 2015Q2

REPORT INFORMATION
  Report Type: Spontaneous
  Country: US (occurrence: None)
  Receive Date: 20150507
  Receipt Date: 20150507
  Transmission Date: 20150821
  Serious: Yes (Hospitalization)
  Sender: FDA-Public Use
  Company Number: None

PATIENT
  Age: 85 Year
  Sex: Female
  Weight: 61.69 kg

DRUGS (12)
  1. PLAVIX [Concomitant]
     Active Substance: CLOPIDOGREL BISULFATE
  2. HCTZ [Concomitant]
     Active Substance: HYDROCHLOROTHIAZIDE
  3. ASPIRIN. [Concomitant]
     Active Substance: ASPIRIN
  4. LEVAQUIN [Suspect]
     Active Substance: LEVOFLOXACIN
     Indication: LOCALISED INFECTION
     Dosage: 1
     Route: 048
     Dates: start: 20150303, end: 20150313
  5. LIPITOR [Concomitant]
     Active Substance: ATORVASTATIN CALCIUM
  6. HYDROCODONE [Concomitant]
     Active Substance: HYDROCODONE
  7. LEVOTHYROXINE [Concomitant]
     Active Substance: LEVOTHYROXINE
  8. OMEPRAZOLE. [Concomitant]
     Active Substance: OMEPRAZOLE
  9. ZOLPIDEM [Concomitant]
     Active Substance: ZOLPIDEM\ZOLPIDEM TARTRATE
  10. COREG [Concomitant]
     Active Substance: CARVEDILOL
  11. GABAPENTIN. [Concomitant]
     Active Substance: GABAPENTIN
  12. ROPINOROL [Concomitant]

REACTIONS (8)
  - Hypoaesthesia [None]
  - Burning sensation [None]
  - Arterial disorder [None]
  - Vein disorder [None]
  - Neuralgia [None]
  - Condition aggravated [None]
  - Pain [None]
  - Cellulitis [None]

NARRATIVE: CASE EVENT DATE: 20150303
